FAERS Safety Report 9135313 (Version 2)
Quarter: 2013Q2

REPORT INFORMATION
  Report Type: Spontaneous
  Country: GB (occurrence: GB)
  Receive Date: 20130304
  Receipt Date: 20130425
  Transmission Date: 20140414
  Serious: Yes (Other)
  Sender: FDA-Public Use
  Company Number: GB-MYLANLABS-2013S1003841

PATIENT
  Age: 71 Year
  Sex: Male

DRUGS (2)
  1. AMLODIPINE [Suspect]
     Indication: PRODUCT USED FOR UNKNOWN INDICATION
     Route: 065
     Dates: start: 20130115
  2. SIMVASTATIN [Concomitant]
     Indication: PRODUCT USED FOR UNKNOWN INDICATION
     Dates: start: 20130115

REACTIONS (6)
  - Abnormal faeces [Unknown]
  - Constipation [Not Recovered/Not Resolved]
  - Local swelling [Recovering/Resolving]
  - Joint swelling [Recovering/Resolving]
  - Asthenia [Unknown]
  - Hypokinesia [Unknown]
